FAERS Safety Report 8370087-2 (Version None)
Quarter: 2012Q1

REPORT INFORMATION
  Report Type: 
  Country: None (occurrence: None)
  Receive Date: 20120323
  Receipt Date: 20111020
  Transmission Date: 20120608
  Serious: Yes (Disabling)
  Sender: FDA-Public Use
  Company Number: 163-21880-11061803

PATIENT
  Age: 80 Year
  Sex: Female

DRUGS (4)
  1. DEXAMETHASONE [Concomitant]
  2. PRILOSEC [Concomitant]
  3. REVLIMID [Suspect]
     Indication: MULTIPLE MYELOMA
     Dosage: 5 MG, 1 IN 1 D, PO
     Route: 048
     Dates: start: 20110505
  4. DIOVAN [Concomitant]

REACTIONS (8)
  - DIARRHOEA [None]
  - PIGMENTATION DISORDER [None]
  - FEELING HOT [None]
  - CONSTIPATION [None]
  - HEADACHE [None]
  - DIZZINESS [None]
  - GAIT DISTURBANCE [None]
  - FEELING ABNORMAL [None]
